FAERS Safety Report 5143969-2 (Version None)
Quarter: 2006Q4

REPORT INFORMATION
  Report Type: 
  Country: None (occurrence: None)
  Receive Date: 20061106
  Receipt Date: 20061027
  Transmission Date: 20070319
  Serious: Yes (Other)
  Sender: FDA-Public Use
  Company Number: GB-AVENTIS-200621270GDDC

PATIENT
  Age: 40 Year
  Sex: Female
  Weight: 67.58 kg

DRUGS (1)
  1. METRONIDAZOLE [Suspect]
     Indication: INFECTION
     Dosage: DOSE: 1 DF
     Route: 048
     Dates: start: 20060817, end: 20060817

REACTIONS (3)
  - DIZZINESS [None]
  - MALAISE [None]
  - VOMITING [None]
